FAERS Safety Report 5884261-8 (Version None)
Quarter: 2008Q3

REPORT INFORMATION
  Report Type: 
  Country: None (occurrence: None)
  Receive Date: 20080915
  Receipt Date: 20080905
  Transmission Date: 20090109
  Serious: Yes (Hospitalization)
  Sender: FDA-Public Use
  Company Number: GB-AMGEN-US301146

PATIENT
  Sex: Female

DRUGS (11)
  1. ENBREL [Suspect]
     Indication: RHEUMATOID ARTHRITIS
     Route: 058
  2. PREDNISOLONE [Suspect]
     Route: 048
  3. FERROUS SULFATE TAB [Concomitant]
     Dosage: UNKNOWN
     Route: 048
  4. DICLOFENAC SODIUM [Concomitant]
     Route: 054
  5. IPRATROPIUM BROMIDE [Concomitant]
     Route: 055
  6. FOLIC ACID [Concomitant]
     Route: 048
  7. RANITIDINE [Concomitant]
     Route: 048
  8. BECONASE [Concomitant]
     Dosage: 50UG, FREQUENCY UNKNOWN
     Route: 045
  9. IBANDRONIC ACID [Concomitant]
     Route: 042
  10. METHOTREXATE [Concomitant]
     Route: 048
  11. CALCICHEW-D3 [Concomitant]
     Dosage: UNKNOWN DOSE, TWICE A DAY
     Route: 048

REACTIONS (1)
  - FEMORAL NECK FRACTURE [None]
